FAERS Safety Report 16180451 (Version 1)
Quarter: 2019Q2

REPORT INFORMATION
  Report Type: Spontaneous
  Country: US (occurrence: US)
  Receive Date: 20190410
  Receipt Date: 20190410
  Transmission Date: 20190711
  Serious: No
  Sender: FDA-Public Use
  Company Number: US-SA-2019SA099383

PATIENT
  Sex: Male

DRUGS (1)
  1. NASACORT ALLERGY 24HR [Suspect]
     Active Substance: TRIAMCINOLONE ACETONIDE

REACTIONS (4)
  - Sinus headache [Not Recovered/Not Resolved]
  - Drug ineffective [Unknown]
  - Sinus disorder [Not Recovered/Not Resolved]
  - Sneezing [Not Recovered/Not Resolved]
